FAERS Safety Report 14046206 (Version 1)
Quarter: 2017Q4

REPORT INFORMATION
  Report Type: Spontaneous
  Country: FR (occurrence: FR)
  Receive Date: 20171005
  Receipt Date: 20171005
  Transmission Date: 20180321
  Serious: Yes (Other)
  Sender: FDA-Public Use
  Company Number: FR-MERCK KGAA-2028876

PATIENT
  Age: 70 Year
  Sex: Female

DRUGS (6)
  1. INNOVAIR(BEKFORM)(BECLOMETASONE DIPROPIONATE, FORMOTEROL FUMARATE) [Concomitant]
  2. FLECAINE(FLECAINIDE ACETATE) [Concomitant]
  3. AERIUS /01398501/(DESLORATADINE) [Concomitant]
  4. NOVOTHYROX [Suspect]
     Active Substance: LEVOTHYROXINE SODIUM
     Indication: THYROIDECTOMY
     Route: 048
     Dates: start: 201704
  5. VENTOLINE/00139501/(SALBUTAMOL) [Concomitant]
  6. COUMADINE(WARFARIN SODIUM) [Concomitant]

REACTIONS (6)
  - Weight increased [Unknown]
  - Diffuse alopecia [Unknown]
  - Fatigue [Unknown]
  - Tachycardia [Unknown]
  - Hypertension [Unknown]
  - Nausea [Unknown]

NARRATIVE: CASE EVENT DATE: 201706
